FAERS Safety Report 6170703-X (Version None)
Quarter: 2009Q2

REPORT INFORMATION
  Report Type: 
  Country: None (occurrence: None)
  Receive Date: 20090428
  Receipt Date: 20090424
  Transmission Date: 20091009
  Serious: Yes (Hospitalization, Other)
  Sender: FDA-Public Use
  Company Number: US-GENENTECH-281308

PATIENT
  Age: 38 Year
  Sex: Female

DRUGS (3)
  1. HERCEPTIN [Suspect]
     Indication: BREAST CANCER
     Dosage: UNK
  2. TAXOTERE [Concomitant]
     Indication: BREAST CANCER
     Dosage: UNK
  3. CARBOPLATIN [Concomitant]
     Indication: BREAST CANCER
     Dosage: UNK

REACTIONS (3)
  - CARDIAC DISORDER [None]
  - CARDIAC VALVE DISEASE [None]
  - PULMONARY HYPERTENSION [None]
